FAERS Safety Report 8429620 (Version 3)
Quarter: 2012Q4

REPORT INFORMATION
  Report Type: 
  Country: US (occurrence: US)
  Receive Date: 20120227
  Receipt Date: 20121102
  Transmission Date: 20130627
  Serious: Yes (Other)
  Sender: FDA-Public Use
  Company Number: US-ELI_LILLY_AND_COMPANY-US201103002920

PATIENT
  Sex: Female
  Weight: 53.97 kg

DRUGS (3)
  1. FORTEO [Suspect]
     Indication: OSTEOPOROSIS
     Dosage: 20 ug, qd
     Route: 058
     Dates: start: 201010
  2. FORTEO [Suspect]
     Dosage: 20 ug, qd
     Route: 058
  3. FORTEO [Suspect]
     Dosage: 20 ug, qd
     Route: 058

REACTIONS (5)
  - Haemoglobin increased [Recovered/Resolved]
  - Blood disorder [Unknown]
  - Pain in extremity [Unknown]
  - Visual impairment [Unknown]
  - Rash [Not Recovered/Not Resolved]
